FAERS Safety Report 5495495-9 (Version None)
Quarter: 2007Q4

REPORT INFORMATION
  Report Type: 
  Country: None (occurrence: None)
  Receive Date: 20071023
  Receipt Date: 20071009
  Transmission Date: 20080405
  Serious: Yes (Other)
  Sender: FDA-Public Use
  Company Number: SPV1-2007-04437

PATIENT
  Age: 26 Year
  Sex: Female

DRUGS (3)
  1. CARBATROL [Suspect]
     Dosage: 600 MG
  2. TOPAMAX [Suspect]
     Dosage: 200 MG
  3. FOLIC ACID [Concomitant]

REACTIONS (3)
  - ABORTION SPONTANEOUS [None]
  - DRUG EXPOSURE DURING PREGNANCY [None]
  - PREGNANCY [None]
